FAERS Safety Report 21922782 (Version 4)
Quarter: 2023Q2

REPORT INFORMATION
  Report Type: Report from Study
  Country: US (occurrence: US)
  Receive Date: 20230128
  Receipt Date: 20230626
  Transmission Date: 20230721
  Serious: Yes (Hospitalization, Other)
  Sender: FDA-Public Use
  Company Number: US-TAKEDA-US201935404

PATIENT
  Age: 69 Year
  Sex: Female

DRUGS (2)
  1. HUMAN IMMUNOGLOBULIN G [Suspect]
     Active Substance: HUMAN IMMUNOGLOBULIN G
     Indication: Primary immunodeficiency syndrome
     Dosage: UNK
     Route: 042
  2. CUVITRU [Suspect]
     Active Substance: HUMAN IMMUNOGLOBULIN G
     Indication: Primary immunodeficiency syndrome
     Dosage: 9 GRAM, 1/WEEK
     Route: 065

REACTIONS (23)
  - Pneumonia [Unknown]
  - Influenza [Unknown]
  - Myocardial infarction [Unknown]
  - Blood pressure decreased [Unknown]
  - Lung disorder [Unknown]
  - COVID-19 [Unknown]
  - Fungal infection [Unknown]
  - Bronchitis [Unknown]
  - Ligament injury [Unknown]
  - Insurance issue [Unknown]
  - Infusion site haemorrhage [Unknown]
  - Infusion site discomfort [Unknown]
  - Pain [Unknown]
  - Swelling [Unknown]
  - Infusion site swelling [Unknown]
  - Headache [Unknown]
  - Infusion site pain [Unknown]
  - Fatigue [Unknown]
  - Poor venous access [Unknown]
  - Malaise [Unknown]
  - Nausea [Unknown]
  - Needle issue [Unknown]
  - Product use issue [Unknown]

NARRATIVE: CASE EVENT DATE: 20221222
